FAERS Safety Report 6396391-5 (Version None)
Quarter: 2009Q4

REPORT INFORMATION
  Report Type: 
  Country: None (occurrence: None)
  Receive Date: 20091012
  Receipt Date: 20091005
  Transmission Date: 20100525
  Serious: Yes (Death)
  Sender: FDA-Public Use
  Company Number: US-JNJFOC-20090301287

PATIENT
  Sex: Female
  Weight: 84 kg

DRUGS (22)
  1. FENTANYL TRANSDERMAL SYSTEM [Suspect]
     Indication: PAIN
     Route: 062
  2. OXYCODONE [Suspect]
     Indication: DRUG USE FOR UNKNOWN INDICATION
     Route: 048
  3. DARVOCET [Suspect]
     Indication: MYALGIA
     Route: 048
  4. TRAZODONE [Concomitant]
  5. DIPHENHYDRAMINE HCL [Concomitant]
  6. DOXYLAMINE SUCCINATE [Concomitant]
  7. MEPROBAMATE [Concomitant]
  8. DEXTROMETHORPHAN HYDROBROMIDE [Concomitant]
  9. SOMA [Concomitant]
     Indication: BACK PAIN
     Route: 065
  10. ALLEGRA [Concomitant]
  11. KEPPRA [Concomitant]
  12. MAXALT [Concomitant]
  13. PROVIGIL [Concomitant]
  14. PROZAC [Concomitant]
  15. ZELNORM [Concomitant]
  16. XANAX [Concomitant]
  17. FLONASE [Concomitant]
  18. CONCERTA [Concomitant]
  19. PROVENTIL GENTLEHALER [Concomitant]
  20. ZOFRAN [Concomitant]
     Route: 042
  21. TORADOL [Concomitant]
     Route: 042
  22. DILAUDID [Concomitant]
     Route: 042

REACTIONS (5)
  - DIZZINESS [None]
  - DRUG ABUSE [None]
  - FEELING ABNORMAL [None]
  - MYOCARDITIS [None]
  - PNEUMONIA [None]
